FAERS Safety Report 7813874-9 (Version None)
Quarter: 2011Q4

REPORT INFORMATION
  Report Type: 
  Country: None (occurrence: None)
  Receive Date: 20111014
  Receipt Date: 20111005
  Transmission Date: 20120403
  Serious: Yes (Other)
  Sender: FDA-Public Use
  Company Number: US-UCBSA-039127

PATIENT
  Sex: Female

DRUGS (2)
  1. METFORMIN HYDROCHLORIDE [Concomitant]
  2. CIMZIA [Suspect]
     Route: 058

REACTIONS (9)
  - PERICARDIAL EFFUSION [None]
  - PYREXIA [None]
  - SYSTEMIC LUPUS ERYTHEMATOSUS [None]
  - ATRIOVENTRICULAR BLOCK [None]
  - TRANSIENT ISCHAEMIC ATTACK [None]
  - WEIGHT DECREASED [None]
  - MALAISE [None]
  - FIBROMYALGIA [None]
  - LUPUS-LIKE SYNDROME [None]
